FAERS Safety Report 8332427-X (Version None)
Quarter: 2012Q1

REPORT INFORMATION
  Report Type: 
  Country: None (occurrence: None)
  Receive Date: 20120315
  Receipt Date: 20110307
  Transmission Date: 20120608
  Serious: No
  Sender: FDA-Public Use
  Company Number: PHHY2011US15693

PATIENT
  Age: 39 Year
  Sex: Male

DRUGS (5)
  1. REMERON [Concomitant]
  2. ZANTAC [Concomitant]
  3. GILENYA [Suspect]
     Indication: MULTIPLE SCLEROSIS
     Dosage: 0.5 MG, QD, ORAL
     Route: 048
     Dates: start: 20110217
  4. DITROPAN [Concomitant]
  5. PREDNISONE TAB [Concomitant]

REACTIONS (4)
  - FATIGUE [None]
  - NAUSEA [None]
  - AGEUSIA [None]
  - DYSPNOEA [None]
